FAERS Safety Report 15981952 (Version 2)
Quarter: 2020Q3

REPORT INFORMATION
  Report Type: Spontaneous
  Country: US (occurrence: US)
  Receive Date: 20190219
  Receipt Date: 20200929
  Transmission Date: 20201102
  Serious: Yes (Other)
  Sender: FDA-Public Use
  Company Number: US-JNJFOC-20190217091

PATIENT
  Age: 49 Year
  Sex: Male

DRUGS (13)
  1. ATORVASTATIN [Concomitant]
     Active Substance: ATORVASTATIN
     Route: 048
  2. STELARA [Suspect]
     Active Substance: USTEKINUMAB
  3. DICLOFENAC SODIUM. [Concomitant]
     Active Substance: DICLOFENAC SODIUM
     Route: 048
  4. LISINOPRIL. [Concomitant]
     Active Substance: LISINOPRIL
     Route: 048
  5. CURCUMIN [Concomitant]
     Active Substance: CURCUMIN
     Route: 048
  6. LOSARTAN POTASSSIUM [Concomitant]
     Active Substance: LOSARTAN POTASSIUM
     Route: 048
  7. TRINTELLIX [Concomitant]
     Active Substance: VORTIOXETINE HYDROBROMIDE
     Route: 048
  8. ROPINIROLE. [Concomitant]
     Active Substance: ROPINIROLE
     Route: 048
  9. PRILOSEC [Concomitant]
     Active Substance: OMEPRAZOLE MAGNESIUM
     Route: 048
  10. STELARA [Suspect]
     Active Substance: USTEKINUMAB
     Indication: PSORIATIC ARTHROPATHY
     Route: 058
     Dates: end: 201810
  11. ALBUTEROL SULFATE. [Concomitant]
     Active Substance: ALBUTEROL SULFATE
  12. MOBIC [Concomitant]
     Active Substance: MELOXICAM
     Route: 048
  13. REQUIP [Concomitant]
     Active Substance: ROPINIROLE HYDROCHLORIDE
     Route: 048

REACTIONS (1)
  - Foot operation [Recovered/Resolved]

NARRATIVE: CASE EVENT DATE: 201812
